FAERS Safety Report 21477232 (Version 2)
Quarter: 2022Q4

REPORT INFORMATION
  Report Type: Spontaneous
  Country: BR (occurrence: BR)
  Receive Date: 20221019
  Receipt Date: 20221026
  Transmission Date: 20230113
  Serious: Yes (Other)
  Sender: FDA-Public Use
  Company Number: None

PATIENT
  Age: 45 Year
  Sex: Female

DRUGS (5)
  1. PREDNISOLONE [Suspect]
     Active Substance: PREDNISOLONE
     Indication: Face oedema
     Dosage: 5 MILLIGRAM, QD
     Route: 065
  2. PREDNISOLONE [Suspect]
     Active Substance: PREDNISOLONE
     Dosage: UNK (MORE THAN 2 MONTHS)
     Route: 065
  3. HYALURONIC ACID [Suspect]
     Active Substance: HYALURONIC ACID
     Indication: Lip cosmetic procedure
     Dosage: 2 MILLILITER
     Route: 065
  4. HYALURONIC ACID [Suspect]
     Active Substance: HYALURONIC ACID
     Indication: Skin cosmetic procedure
     Dosage: UNK (RESTYLANE AND STYLAGE: TOTAL 10ML ON FACIAL AREAS AND ADDITIONAL 1ML ON LIPS)
     Route: 065
  5. HYALURONIC ACID [Suspect]
     Active Substance: HYALURONIC ACID
     Indication: Dermal filler injection

REACTIONS (3)
  - Intentional product misuse [Unknown]
  - Incorrect product administration duration [Recovered/Resolved]
  - Cushing^s syndrome [Recovered/Resolved]
